FAERS Safety Report 9172098 (Version 4)
Quarter: 2014Q2

REPORT INFORMATION
  Report Type: Report from Study
  Country: JP (occurrence: JP)
  Receive Date: 20130319
  Receipt Date: 20140606
  Transmission Date: 20141212
  Serious: Yes (Hospitalization)
  Sender: FDA-Public Use
  Company Number: JP-AMGEN-JPNSP2013017688

PATIENT
  Age: 36 Year
  Sex: Female

DRUGS (10)
  1. ROMIPLOSTIM - KHK [Suspect]
     Indication: IMMUNE THROMBOCYTOPENIC PURPURA
     Dosage: 150 MUG, UNK
     Route: 058
     Dates: start: 20120601, end: 20130208
  2. SOPHIA A [Concomitant]
     Dosage: 1 DF, BID
     Route: 048
     Dates: start: 20130111, end: 20130118
  3. PREDONINE [Concomitant]
     Indication: IMMUNE THROMBOCYTOPENIC PURPURA
     Dosage: 20 MG, UNK
     Route: 048
     Dates: start: 20120615
  4. PREDONINE [Concomitant]
     Indication: IMMUNE THROMBOCYTOPENIC PURPURA
  5. PREDNISOLONE [Concomitant]
     Indication: IMMUNE THROMBOCYTOPENIC PURPURA
     Dosage: 2 MG, UNK
     Route: 048
     Dates: start: 20121026
  6. REVOLADE [Concomitant]
     Indication: IMMUNE THROMBOCYTOPENIC PURPURA
     Dosage: 25 MG, UNK
     Route: 048
     Dates: start: 20111209, end: 20120531
  7. ONEALFA [Concomitant]
     Indication: PROPHYLAXIS
     Dosage: 1 MUG, UNK
     Route: 048
     Dates: start: 20081027, end: 20130125
  8. GLAKAY [Concomitant]
     Indication: PROPHYLAXIS
     Dosage: 30 MG, UNK
     Route: 048
     Dates: start: 20090511, end: 20130125
  9. GASTER D [Concomitant]
     Indication: PROPHYLAXIS
     Dosage: UNK
     Route: 048
  10. LENDORMIN [Concomitant]
     Indication: PROPHYLAXIS
     Dosage: UNK
     Route: 048

REACTIONS (4)
  - Deep vein thrombosis [Recovered/Resolved]
  - Foot deformity [Not Recovered/Not Resolved]
  - Menorrhagia [Recovering/Resolving]
  - Thirst [Recovered/Resolved]
